FAERS Safety Report 4456048-4 (Version None)
Quarter: 2004Q3

REPORT INFORMATION
  Report Type: 
  Country: None (occurrence: None)
  Receive Date: 20040922
  Receipt Date: 20040821
  Transmission Date: 20050211
  Serious: Yes (Hospitalization)
  Sender: FDA-Public Use
  Company Number: PHHO2004US11777

PATIENT
  Sex: Female
  Weight: 101 kg

DRUGS (2)
  1. GLEEVEC [Suspect]
     Indication: OVARIAN NEOPLASM
     Dosage: 400 MG, BID
     Route: 048
     Dates: start: 20040730, end: 20040808
  2. TOPOTECAN [Concomitant]
     Dates: start: 20040201, end: 20040701

REACTIONS (11)
  - ANAEMIA [None]
  - BLOOD CREATININE INCREASED [None]
  - BLOOD UREA INCREASED [None]
  - DECREASED APPETITE [None]
  - FATIGUE [None]
  - HYDRONEPHROSIS [None]
  - HYPONATRAEMIA [None]
  - MALIGNANT NEOPLASM PROGRESSION [None]
  - RENAL FAILURE [None]
  - URETERAL STENT INSERTION [None]
  - URETERIC OBSTRUCTION [None]
